FAERS Safety Report 6402741-3 (Version None)
Quarter: 2009Q4

REPORT INFORMATION
  Report Type: 
  Country: None (occurrence: None)
  Receive Date: 20091013
  Receipt Date: 20090921
  Transmission Date: 20100525
  Serious: Yes (Hospitalization)
  Sender: FDA-Public Use
  Company Number: US-000977

PATIENT
  Sex: Male

DRUGS (1)
  1. DEGARELIX 240 MG [Suspect]
     Indication: PROSTATE CANCER
     Dosage: 240 MG TOTAL
     Dates: start: 20090801, end: 20090801

REACTIONS (1)
  - DYSURIA [None]
